FAERS Safety Report 15880974 (Version 1)
Quarter: 2019Q1

REPORT INFORMATION
  Report Type: Spontaneous
  Country: US (occurrence: US)
  Receive Date: 20190128
  Receipt Date: 20190128
  Transmission Date: 20190417
  Serious: No
  Sender: FDA-Public Use
  Company Number: US-PFIZER INC-2019033301

PATIENT
  Sex: Female

DRUGS (2)
  1. ALTACE [Suspect]
     Active Substance: RAMIPRIL
     Dosage: UNK
  2. COREG [Concomitant]
     Active Substance: CARVEDILOL

REACTIONS (4)
  - Abdominal pain upper [Unknown]
  - Sensation of foreign body [Unknown]
  - Diarrhoea [Unknown]
  - Vomiting [Unknown]
